FAERS Safety Report 8375158-2 (Version None)
Quarter: 2012Q2

REPORT INFORMATION
  Report Type: 
  Country: None (occurrence: None)
  Receive Date: 20120521
  Receipt Date: 20120507
  Transmission Date: 20120825
  Serious: Yes (Other)
  Sender: FDA-Public Use
  Company Number: CHPA2012US010550

PATIENT
  Age: 64 Year
  Sex: Female

DRUGS (2)
  1. ALEVE                              /00256202/ [Concomitant]
     Indication: FIBROMYALGIA
     Dosage: 2 DF, QD PRN
     Dates: start: 20120201
  2. EXCEDRIN (MIGRAINE) [Suspect]
     Indication: FIBROMYALGIA
     Dosage: 4 DF, QD 3-4 TIMES A WEEK
     Route: 048
     Dates: start: 20020101

REACTIONS (6)
  - ARTHRITIS [None]
  - DRUG DEPENDENCE [None]
  - HIATUS HERNIA [None]
  - OFF LABEL USE [None]
  - GASTROOESOPHAGEAL REFLUX DISEASE [None]
  - OVERDOSE [None]
